FAERS Safety Report 7048492-6 (Version None)
Quarter: 2010Q4

REPORT INFORMATION
  Report Type: 
  Country: None (occurrence: None)
  Receive Date: 20101015
  Receipt Date: 20101015
  Transmission Date: 20110411
  Serious: Yes (Life-Threatening, Other)
  Sender: FDA-Public Use
  Company Number: None

PATIENT
  Sex: Male
  Weight: 70.3075 kg

DRUGS (1)
  1. LOSARTAN POTASSIUM [Suspect]
     Indication: HYPERTENSION
     Dosage: ONE DAILY PO
     Route: 048
     Dates: start: 20101012, end: 20101014

REACTIONS (10)
  - ANXIETY [None]
  - DIZZINESS [None]
  - EYE SWELLING [None]
  - HEADACHE [None]
  - HYPOAESTHESIA ORAL [None]
  - NASAL CONGESTION [None]
  - NAUSEA [None]
  - OEDEMA PERIPHERAL [None]
  - PRODUCT SUBSTITUTION ISSUE [None]
  - RESTLESSNESS [None]
